FAERS Safety Report 9944924 (Version 1)
Quarter: 2014Q1

REPORT INFORMATION
  Report Type: Report from Study
  Country: US (occurrence: US)
  Receive Date: 20140303
  Receipt Date: 20140303
  Transmission Date: 20141002
  Serious: No
  Sender: FDA-Public Use
  Company Number: US-ABBVIE-13P-163-1052395-00

PATIENT
  Sex: Female
  Weight: 62.2 kg

DRUGS (7)
  1. HUMIRA [Suspect]
     Indication: CROHN^S DISEASE
     Dates: start: 2004
  2. LOMOTIL [Concomitant]
     Indication: CROHN^S DISEASE
  3. CIPRO [Concomitant]
     Indication: CROHN^S DISEASE
  4. CANASA [Concomitant]
     Indication: CROHN^S DISEASE
  5. PROCTOFOAM HC [Concomitant]
     Indication: CROHN^S DISEASE
  6. METAMUCIL [Concomitant]
     Indication: CROHN^S DISEASE
  7. UNKNOWN BLOOD PRESSURE PILL [Concomitant]
     Indication: HYPERTENSION

REACTIONS (4)
  - Pouchitis [Not Recovered/Not Resolved]
  - Diarrhoea [Not Recovered/Not Resolved]
  - Poor quality sleep [Not Recovered/Not Resolved]
  - Anorectal discomfort [Not Recovered/Not Resolved]
